FAERS Safety Report 11651853 (Version 1)
Quarter: 2015Q4

REPORT INFORMATION
  Report Type: Spontaneous
  Country: US (occurrence: US)
  Receive Date: 20151022
  Receipt Date: 20151022
  Transmission Date: 20160304
  Serious: Yes (Other)
  Sender: FDA-Public Use
  Company Number: US-SA-2015SA166557

PATIENT
  Age: 51 Year
  Sex: Male
  Weight: 74.8 kg

DRUGS (11)
  1. ADVAIR HFA [Concomitant]
     Active Substance: FLUTICASONE PROPIONATE\SALMETEROL XINAFOATE
     Dosage: 1 DOSE AS NEEDED
     Dates: start: 20130924
  2. VITAMIN B12 [Concomitant]
     Active Substance: CYANOCOBALAMIN
     Dates: start: 20130924
  3. VITAMIN C [Concomitant]
     Active Substance: ASCORBIC ACID
     Dates: start: 20130819
  4. FABRAZYME [Suspect]
     Active Substance: AGALSIDASE BETA
     Indication: LIPIDOSIS
     Route: 042
     Dates: start: 20040628
  5. PREDNISONE. [Concomitant]
     Active Substance: PREDNISONE
     Dates: start: 20150720
  6. DIPHENHYDRAMINE. [Concomitant]
     Active Substance: DIPHENHYDRAMINE
     Indication: ANAPHYLACTIC REACTION
     Dates: start: 20150720
  7. ALBUTEROL. [Concomitant]
     Active Substance: ALBUTEROL
     Dosage: DOSE:2 PUFF(S)
     Dates: start: 20130819
  8. FLOVENT [Concomitant]
     Active Substance: FLUTICASONE PROPIONATE
     Dosage: DOSE:2 PUFF(S)
     Dates: start: 20141229
  9. ASPIRIN. [Concomitant]
     Active Substance: ASPIRIN
     Dates: start: 20130819
  10. SINGULAIR [Concomitant]
     Active Substance: MONTELUKAST SODIUM
  11. FISH OIL [Concomitant]
     Active Substance: FISH OIL
     Dates: start: 20130819

REACTIONS (1)
  - Staphylococcal infection [Not Recovered/Not Resolved]
